FAERS Safety Report 12636756 (Version 1)
Quarter: 2016Q3

REPORT INFORMATION
  Report Type: Spontaneous
  Country: JP (occurrence: JP)
  Receive Date: 20160809
  Receipt Date: 20160809
  Transmission Date: 20161109
  Serious: Yes (Life-Threatening, Hospitalization, Other)
  Sender: FDA-Public Use
  Company Number: JP-GLAXOSMITHKLINE-B0791767A

PATIENT
  Age: 29 Year
  Sex: Female

DRUGS (6)
  1. LAMOTRIGINE. [Suspect]
     Active Substance: LAMOTRIGINE
     Indication: BIPOLAR DISORDER
     Route: 048
     Dates: start: 20120302, end: 20120313
  2. BENZALIN [Concomitant]
     Active Substance: NITRAZEPAM
     Indication: SLEEP DISORDER
     Route: 048
     Dates: start: 20120302, end: 20120314
  3. ABILIFY [Concomitant]
     Active Substance: ARIPIPRAZOLE
     Indication: SEDATION
     Route: 048
     Dates: start: 20120302, end: 20120314
  4. KEISHIKARYUKOTSUBOREITO [Concomitant]
     Active Substance: HERBALS
     Dosage: 2.5 G, TID
     Dates: start: 20120302, end: 20120314
  5. DIAZEPAM. [Concomitant]
     Active Substance: DIAZEPAM
     Indication: SEDATION
     Route: 048
     Dates: start: 20120302, end: 20120314
  6. SEROQUEL [Concomitant]
     Active Substance: QUETIAPINE FUMARATE
     Indication: SEDATION
     Route: 048
     Dates: start: 20120302, end: 20120314

REACTIONS (18)
  - Rash [Recovered/Resolved]
  - Stevens-Johnson syndrome [Recovered/Resolved]
  - Drug ineffective [Unknown]
  - Generalised erythema [Recovered/Resolved]
  - Oral mucosa erosion [Recovered/Resolved]
  - Vulvar erosion [Recovered/Resolved]
  - Conjunctival hyperaemia [Recovered/Resolved]
  - Blister [Recovered/Resolved]
  - Rash [Recovered/Resolved]
  - Hypophagia [Recovered/Resolved]
  - Toxic epidermal necrolysis [Recovered/Resolved]
  - Dysuria [Recovered/Resolved]
  - Haemoptysis [Recovered/Resolved]
  - Erythema of eyelid [Recovered/Resolved]
  - C-reactive protein increased [Recovered/Resolved]
  - Pyrexia [Recovered/Resolved]
  - Pruritus [Recovered/Resolved]
  - Dyspnoea [Recovered/Resolved]

NARRATIVE: CASE EVENT DATE: 20120314
